FAERS Safety Report 5429013-8 (Version None)
Quarter: 2007Q3

REPORT INFORMATION
  Report Type: 
  Country: None (occurrence: None)
  Receive Date: 20070829
  Receipt Date: 20061102
  Transmission Date: 20080115
  Serious: No
  Sender: FDA-Public Use
  Company Number: A0622149A

PATIENT
  Age: 58 Year
  Sex: Female

DRUGS (2)
  1. MALARONE [Suspect]
     Indication: MALARIA PROPHYLAXIS
     Dosage: 250MG VARIABLE DOSE
     Route: 048
     Dates: start: 20060701, end: 20060101
  2. SYNTHROID [Concomitant]

REACTIONS (2)
  - NAUSEA [None]
  - VOMITING [None]
